FAERS Safety Report 21423494 (Version 1)
Quarter: 2022Q4

REPORT INFORMATION
  Report Type: Spontaneous
  Country: US (occurrence: None)
  Receive Date: 20221006
  Receipt Date: 20221006
  Transmission Date: 20230113
  Serious: Yes (Death)
  Sender: FDA-Public Use
  Company Number: None

PATIENT
  Sex: Female

DRUGS (4)
  1. BENLYSTA [Suspect]
     Active Substance: BELIMUMAB
     Indication: Systemic lupus erythematosus
     Route: 042
     Dates: start: 20220726
  2. ACETAMINOPHE CAP [Concomitant]
  3. DIPHENHYDRAM CAP [Concomitant]
  4. SOLU-MEDROL INJ [Concomitant]

REACTIONS (1)
  - Death [None]
